FAERS Safety Report 25476668 (Version 1)
Quarter: 2025Q2

REPORT INFORMATION
  Report Type: Spontaneous
  Country: US (occurrence: US)
  Receive Date: 20250625
  Receipt Date: 20250625
  Transmission Date: 20250716
  Serious: Yes (Other)
  Sender: Aarkish Pharmaceuticals
  Company Number: US-Aarkish Pharmaceuticals NJ Inc.-2179341

PATIENT

DRUGS (1)
  1. METOLAZONE [Suspect]
     Active Substance: METOLAZONE
     Indication: Product used for unknown indication

REACTIONS (1)
  - Seizure [Unknown]
